FAERS Safety Report 13718366 (Version 1)
Quarter: 2017Q3

REPORT INFORMATION
  Report Type: Spontaneous
  Country: CN (occurrence: CN)
  Receive Date: 20170705
  Receipt Date: 20170705
  Transmission Date: 20171127
  Serious: Yes (Other)
  Sender: FDA-Public Use
  Company Number: CN-PFIZER INC-2017284479

PATIENT
  Age: 53 Year
  Sex: Female
  Weight: 75 kg

DRUGS (3)
  1. PHARMORUBICIN [Suspect]
     Active Substance: EPIRUBICIN
     Indication: BREAST CANCER
     Dosage: 170 MG, 1X/DAY
     Route: 041
     Dates: start: 20170314, end: 20170314
  2. ENDOXAN [Suspect]
     Active Substance: CYCLOPHOSPHAMIDE
     Indication: BREAST CANCER
     Dosage: 1 G, 1X/DAY
     Route: 041
     Dates: start: 20170314, end: 20170314
  3. JINYOULI [Concomitant]
     Indication: CHEMOTHERAPY
     Dosage: 6 MG, 1X/DAY
     Route: 058
     Dates: start: 20170315, end: 20170315

REACTIONS (4)
  - Asthenia [Recovering/Resolving]
  - Pyrexia [Recovering/Resolving]
  - Septic shock [Recovering/Resolving]
  - Bone marrow failure [Recovering/Resolving]

NARRATIVE: CASE EVENT DATE: 20170321
